FAERS Safety Report 5949922-0 (Version None)
Quarter: 2008Q4

REPORT INFORMATION
  Report Type: 
  Country: None (occurrence: None)
  Receive Date: 20081112
  Receipt Date: 20081107
  Transmission Date: 20090506
  Serious: Yes (Hospitalization)
  Sender: FDA-Public Use
  Company Number: JP-ASTRAZENECA-2008AP08302

PATIENT
  Age: 79 Year
  Sex: Male
  Weight: 55 kg

DRUGS (10)
  1. CRESTOR [Suspect]
     Indication: HYPERLIPIDAEMIA
     Route: 048
     Dates: start: 20080905, end: 20081015
  2. PLAVIX [Suspect]
     Indication: CORONARY ARTERIAL STENT INSERTION
     Route: 048
     Dates: start: 20080903, end: 20081015
  3. RENIVACE [Suspect]
     Indication: HYPERTENSION
     Route: 048
     Dates: start: 20080903, end: 20081017
  4. LANSOPRAZOLE [Suspect]
     Indication: GASTRIC ULCER
     Route: 048
     Dates: start: 20080906, end: 20081015
  5. ASPIRIN [Concomitant]
     Indication: CORONARY ARTERIAL STENT INSERTION
     Route: 048
     Dates: start: 20080903
  6. LASIX [Concomitant]
     Indication: CARDIAC FAILURE
     Route: 048
     Dates: start: 20080911
  7. HERBESSER R [Concomitant]
     Indication: HYPERTENSION
     Route: 048
     Dates: start: 20080927
  8. ARTIST [Concomitant]
     Indication: CARDIAC FAILURE
     Route: 048
     Dates: start: 20081007
  9. SIGMART [Concomitant]
     Indication: ANGINA PECTORIS
     Route: 048
  10. PREDONINE [Concomitant]
     Indication: POLYMYALGIA RHEUMATICA
     Route: 048

REACTIONS (1)
  - PNEUMONIA [None]
